FAERS Safety Report 20651662 (Version 1)
Quarter: 2022Q1

REPORT INFORMATION
  Report Type: Spontaneous
  Country: US (occurrence: US)
  Receive Date: 20220330
  Receipt Date: 20220330
  Transmission Date: 20220423
  Serious: Yes (Hospitalization)
  Sender: FDA-Public Use
  Company Number: US-Melinta Therapeutics, LLC-US-MLNT-22-00030

PATIENT
  Age: 57 Year
  Sex: Female
  Weight: 110 kg

DRUGS (4)
  1. ORBACTIV [Suspect]
     Active Substance: ORITAVANCIN
     Indication: Skin bacterial infection
     Dosage: STOPPED AFTER APPROXIMATELY HALF OF THE TOTAL DOSE (600 MG)
     Route: 041
  2. VANCOMYCIN [Concomitant]
     Active Substance: VANCOMYCIN
     Indication: Skin bacterial infection
     Route: 041
  3. VANCOMYCIN [Concomitant]
     Active Substance: VANCOMYCIN
     Dosage: 20 MG/KG
     Route: 041
  4. VANCOMYCIN [Concomitant]
     Active Substance: VANCOMYCIN
     Route: 041

REACTIONS (7)
  - Blood pressure increased [Unknown]
  - Pain in extremity [Unknown]
  - Dyspnoea [Unknown]
  - Tremor [Unknown]
  - Heart rate increased [Unknown]
  - Drug interaction [Unknown]
  - Antibiotic level above therapeutic [Unknown]
